FAERS Safety Report 13092342 (Version 1)
Quarter: 2017Q1

REPORT INFORMATION
  Report Type: Spontaneous
  Country: US (occurrence: US)
  Receive Date: 20170106
  Receipt Date: 20170106
  Transmission Date: 20170428
  Serious: No
  Sender: FDA-Public Use
  Company Number: US-JNJFOC-20161104179

PATIENT
  Age: 4 Year
  Sex: Female
  Weight: 12.25 kg

DRUGS (1)
  1. CHILDRENS TYLENOL [Suspect]
     Active Substance: ACETAMINOPHEN
     Indication: COUGH
     Dosage: AS NEEDED (LONGER THAN 4 HOUR PERIODS)
     Route: 048
     Dates: end: 20161102

REACTIONS (4)
  - Abnormal behaviour [Not Recovered/Not Resolved]
  - Drug ineffective for unapproved indication [Unknown]
  - Intentional product use issue [Unknown]
  - Crying [Not Recovered/Not Resolved]
